FAERS Safety Report 23427250 (Version 1)
Quarter: 2024Q1

REPORT INFORMATION
  Report Type: Spontaneous
  Country: US (occurrence: US)
  Receive Date: 20240122
  Receipt Date: 20240122
  Transmission Date: 20240410
  Serious: No
  Sender: FDA-Public Use
  Company Number: US-PERRIGO-23US003275

PATIENT
  Age: 11 Year
  Sex: Female
  Weight: 38.549 kg

DRUGS (2)
  1. IBUPROFEN [Suspect]
     Active Substance: IBUPROFEN
     Indication: Product used for unknown indication
     Dosage: 300 MG, SINGLE
     Route: 048
     Dates: start: 20230309, end: 20230309
  2. IBUPROFEN [Suspect]
     Active Substance: IBUPROFEN
     Dosage: 300 MG, SINGLE
     Route: 048
     Dates: start: 20230309, end: 20230309

REACTIONS (1)
  - Inappropriate schedule of product administration [Unknown]

NARRATIVE: CASE EVENT DATE: 20230309
